FAERS Safety Report 24229574 (Version 1)
Quarter: 2024Q3

REPORT INFORMATION
  Report Type: Spontaneous
  Country: US (occurrence: US)
  Receive Date: 20240820
  Receipt Date: 20240820
  Transmission Date: 20241016
  Serious: Yes (Other)
  Sender: ELI LILLY AND CO
  Company Number: US-ELI_LILLY_AND_COMPANY-US202408008320

PATIENT
  Age: 60 Year
  Sex: Female

DRUGS (1)
  1. REYVOW [Suspect]
     Active Substance: LASMIDITAN
     Indication: Migraine
     Dosage: UNK UNK, UNKNOWN
     Route: 065

REACTIONS (7)
  - Cerebrovascular accident [Unknown]
  - Migraine [Unknown]
  - Hemiplegic migraine [Unknown]
  - Eye disorder [Unknown]
  - Stress [Unknown]
  - Decreased appetite [Unknown]
  - Speech disorder [Unknown]
